FAERS Safety Report 21621875 (Version 1)
Quarter: 2022Q4

REPORT INFORMATION
  Report Type: Report from Study
  Country: US (occurrence: US)
  Receive Date: 20221121
  Receipt Date: 20221121
  Transmission Date: 20230112
  Serious: Yes (Death)
  Sender: FDA-Public Use
  Company Number: US-BAUSCH-BL-2022-025679

PATIENT
  Age: 75 Year
  Sex: Male

DRUGS (1)
  1. XIFAXAN [Suspect]
     Active Substance: RIFAXIMIN
     Indication: Liver disorder
     Route: 048

REACTIONS (3)
  - Hepatic failure [Fatal]
  - Ill-defined disorder [Fatal]
  - Inappropriate schedule of product administration [Unknown]
